FAERS Safety Report 11521058 (Version 1)
Quarter: 2015Q3

REPORT INFORMATION
  Report Type: Spontaneous
  Country: US (occurrence: None)
  Receive Date: 20150917
  Receipt Date: 20150917
  Transmission Date: 20151125
  Serious: No
  Sender: FDA-Public Use
  Company Number: None

PATIENT
  Sex: Female

DRUGS (1)
  1. CETUXIMAB [Suspect]
     Active Substance: CETUXIMAB
     Indication: NEOPLASM MALIGNANT
     Dates: start: 20150602, end: 20150606

REACTIONS (8)
  - Pruritus [None]
  - Agitation [None]
  - Anaphylactic shock [None]
  - Vomiting [None]
  - Cardiac arrest [None]
  - Infusion related reaction [None]
  - Confusional state [None]
  - Pulseless electrical activity [None]
